FAERS Safety Report 7984275-8 (Version None)
Quarter: 2011Q4

REPORT INFORMATION
  Report Type: 
  Country: None (occurrence: None)
  Receive Date: 20111216
  Receipt Date: 20111206
  Transmission Date: 20120403
  Serious: Yes (Other)
  Sender: FDA-Public Use
  Company Number: CA-JNJFOC-20111204316

PATIENT
  Sex: Female
  Weight: 68 kg

DRUGS (6)
  1. ALL OTHER THERAPEUTICS [Concomitant]
     Route: 065
  2. REMICADE [Suspect]
     Indication: RHEUMATOID ARTHRITIS
     Route: 042
     Dates: start: 20111012, end: 20111012
  3. METHOTREXATE [Concomitant]
     Route: 065
  4. NOVOTRIAMZIDE [Concomitant]
     Route: 065
  5. PANTOPRAZOLE [Concomitant]
     Route: 065
  6. CARBOCAL D [Concomitant]
     Route: 065

REACTIONS (2)
  - MONOPLEGIA [None]
  - THYROID CYST [None]
